FAERS Safety Report 24252241 (Version 3)
Quarter: 2024Q3

REPORT INFORMATION
  Report Type: Spontaneous
  Country: PT (occurrence: PT)
  Receive Date: 20240827
  Receipt Date: 20240902
  Transmission Date: 20241017
  Serious: Yes (Hospitalization, Other)
  Sender: MERCK
  Company Number: PT-009507513-2408PRT007884

PATIENT
  Age: 79 Year
  Sex: Male

DRUGS (1)
  1. PEMBROLIZUMAB [Suspect]
     Active Substance: PEMBROLIZUMAB
     Dosage: UNK

REACTIONS (3)
  - Renal tubular acidosis [Unknown]
  - Immune-mediated enterocolitis [Recovered/Resolved]
  - Immune-mediated dermatitis [Recovered/Resolved]

NARRATIVE: CASE EVENT DATE: 20220101
